FAERS Safety Report 8803574 (Version 1)
Quarter: 2012Q4

REPORT INFORMATION
  Report Type: 
  Country: AR (occurrence: AR)
  Receive Date: 20120924
  Receipt Date: 20120924
  Transmission Date: 20130627
  Serious: Yes (Other)
  Sender: FDA-Public Use
  Company Number: PHHY2012AR081878

PATIENT
  Sex: Male

DRUGS (1)
  1. RASILEZ [Suspect]
     Indication: BLOOD PRESSURE
     Dosage: 150 mg, daily

REACTIONS (1)
  - Ligament rupture [Not Recovered/Not Resolved]
